FAERS Safety Report 9696413 (Version 1)
Quarter: 2013Q4

REPORT INFORMATION
  Report Type: Spontaneous
  Country: US (occurrence: US)
  Receive Date: 20131119
  Receipt Date: 20131119
  Transmission Date: 20140711
  Serious: No
  Sender: FDA-Public Use
  Company Number: US-TEVA-445120USA

PATIENT
  Age: 20 Year
  Sex: Female
  Weight: 63.56 kg

DRUGS (4)
  1. PROAIR HFA [Suspect]
     Indication: ASTHMA
  2. ALBUTEROL SULFATE [Concomitant]
     Indication: ASTHMA
     Dosage: EVERY 3-4 HOURS
     Route: 055
     Dates: start: 20131113
  3. PREDNISONE [Concomitant]
     Indication: ASTHMA
     Route: 048
     Dates: start: 20131113
  4. XOLAIR [Concomitant]
     Indication: HYPERSENSITIVITY
     Dosage: EVERY 2 WEEKS

REACTIONS (3)
  - Wheezing [Not Recovered/Not Resolved]
  - Asthma [Unknown]
  - Drug ineffective [Unknown]
